FAERS Safety Report 22143173 (Version 1)
Quarter: 2023Q1

REPORT INFORMATION
  Report Type: Spontaneous
  Country: US (occurrence: None)
  Receive Date: 20230324
  Receipt Date: 20230324
  Transmission Date: 20230417
  Serious: No
  Sender: FDA-Public Use
  Company Number: None

PATIENT

DRUGS (1)
  1. LIDOCAINE VISCOUS [Suspect]
     Active Substance: LIDOCAINE HYDROCHLORIDE

REACTIONS (3)
  - Product dispensing error [None]
  - Vomiting [None]
  - Incorrect route of product administration [None]

NARRATIVE: CASE EVENT DATE: 20230211
